FAERS Safety Report 13353833 (Version 19)
Quarter: 2024Q3

REPORT INFORMATION
  Report Type: Spontaneous
  Country: US (occurrence: US)
  Receive Date: 20170321
  Receipt Date: 20240926
  Transmission Date: 20241017
  Serious: Yes (Other)
  Sender: PFIZER
  Company Number: US-PFIZER INC-2017110744

PATIENT
  Age: 63 Year
  Sex: Female

DRUGS (8)
  1. IBRANCE [Suspect]
     Active Substance: PALBOCICLIB
     Indication: Breast cancer female
     Dosage: 125 MG, 1X/DAY [FOR 20 DAYS]
     Route: 048
     Dates: start: 20150220, end: 20150311
  2. IBRANCE [Suspect]
     Active Substance: PALBOCICLIB
     Dosage: 75 MG, ALTERNATE DAY
     Route: 048
     Dates: start: 20150402, end: 2015
  3. IBRANCE [Suspect]
     Active Substance: PALBOCICLIB
     Dosage: 75 MG, CYCLIC (EVERY THREE DAYS)
     Route: 048
     Dates: start: 2015, end: 2015
  4. IBRANCE [Suspect]
     Active Substance: PALBOCICLIB
     Dosage: 75 MG, 1X/DAY
     Route: 048
     Dates: start: 2015, end: 20150909
  5. IBRANCE [Suspect]
     Active Substance: PALBOCICLIB
     Dosage: 75 MG, CYCLIC (TAKE WITH FOOD ON DAYS 1 THROUGH 12 OF 28 DAY CYCLE)
     Route: 048
  6. IBRANCE [Suspect]
     Active Substance: PALBOCICLIB
     Dosage: 75 MG, CYCLIC (TAKE 1 CAPSULE PO WITH FOOD ON DAYS 1 THROUGH 10 OF 28 DAY CYCLE)
     Route: 048
  7. IBRANCE [Suspect]
     Active Substance: PALBOCICLIB
     Dosage: 75 MG, 1 CAPSULE DAILY ON DAYS 1-10 OF A 28 DAY CYCLE
     Route: 048
  8. IBRANCE [Suspect]
     Active Substance: PALBOCICLIB
     Dosage: 75 MG, CYCLIC (1 CAPSULE DAILY ON DAYS 1 THROUGH 10 OF 28 DAY CYCLE(WITH FOOD)
     Route: 048
     Dates: start: 20240115

REACTIONS (6)
  - Neutropenia [Recovered/Resolved]
  - Off label use [Unknown]
  - Aphonia [Unknown]
  - Granulocyte count decreased [Recovered/Resolved]
  - Platelet count decreased [Recovered/Resolved]
  - White blood cell count decreased [Recovered/Resolved]

NARRATIVE: CASE EVENT DATE: 20150101
